FAERS Safety Report 19143429 (Version 1)
Quarter: 2021Q2

REPORT INFORMATION
  Report Type: Spontaneous
  Country: US (occurrence: US)
  Receive Date: 20210416
  Receipt Date: 20210416
  Transmission Date: 20210717
  Serious: No
  Sender: FDA-Public Use
  Company Number: NVSC2021US081283

PATIENT
  Age: 61 Year
  Sex: Female
  Weight: 130.18 kg

DRUGS (4)
  1. PHENYTOIN. [Suspect]
     Active Substance: PHENYTOIN
     Indication: SEIZURE
     Dosage: 100 MG, TID (AT 8.00, 3.00 AND 11.00)
     Route: 065
  2. TEGRETOL [Suspect]
     Active Substance: CARBAMAZEPINE
     Indication: PRODUCT USED FOR UNKNOWN INDICATION
     Dosage: UNK
     Route: 065
  3. PENTOBARBITAL;PHENOBARBITAL [Concomitant]
     Indication: SEIZURE
     Dosage: 60 MG, TID
     Route: 065
  4. LEVETIRACETAM. [Concomitant]
     Active Substance: LEVETIRACETAM
     Indication: PRODUCT USED FOR UNKNOWN INDICATION
     Dosage: 750 MG (TWO AT MORNING AND TWO AT NIGHT)
     Route: 065
     Dates: start: 2020

REACTIONS (6)
  - Tongue haemorrhage [Recovered/Resolved]
  - Hyperaesthesia teeth [Recovered/Resolved]
  - Illness [Recovering/Resolving]
  - Incorrect dose administered [Not Recovered/Not Resolved]
  - Bruxism [Not Recovered/Not Resolved]
  - Product use complaint [Not Recovered/Not Resolved]

NARRATIVE: CASE EVENT DATE: 20210328
